FAERS Safety Report 11393643 (Version 2)
Quarter: 2015Q3

REPORT INFORMATION
  Report Type: Report from Study
  Country: US (occurrence: US)
  Receive Date: 20150819
  Receipt Date: 20150904
  Transmission Date: 20151125
  Serious: Yes (Other)
  Sender: FDA-Public Use
  Company Number: PHEH2015US002234

PATIENT
  Sex: Female
  Weight: 67.12 kg

DRUGS (2)
  1. D3 [Concomitant]
     Active Substance: 25-HYDROXYCHOLECALCIFEROL, 5-TRANS-
     Indication: NUTRITIONAL SUPPLEMENTATION
     Dosage: 7000 MG, UNK
     Route: 065
  2. GILENYA [Suspect]
     Active Substance: FINGOLIMOD HYDROCHLORIDE
     Indication: MULTIPLE SCLEROSIS
     Dosage: 0.5 MG, QD
     Route: 048
     Dates: start: 20141223

REACTIONS (9)
  - Memory impairment [Not Recovered/Not Resolved]
  - Burning sensation [Not Recovered/Not Resolved]
  - Gait disturbance [Not Recovered/Not Resolved]
  - Visual impairment [Not Recovered/Not Resolved]
  - Disease progression [Not Recovered/Not Resolved]
  - Cerebral atrophy [Unknown]
  - Contusion [Not Recovered/Not Resolved]
  - Central nervous system lesion [Not Recovered/Not Resolved]
  - Colour blindness [Unknown]
